FAERS Safety Report 16577396 (Version 1)
Quarter: 2019Q3

REPORT INFORMATION
  Report Type: Report from Study
  Country: CZ (occurrence: CZ)
  Receive Date: 20190716
  Receipt Date: 20190716
  Transmission Date: 20191004
  Serious: Yes (Hospitalization, Other)
  Sender: FDA-Public Use
  Company Number: CZ-AUROBINDO-AUR-APL-2019-040139

PATIENT

DRUGS (1)
  1. PARACETAMOL TABLET [Suspect]
     Active Substance: ACETAMINOPHEN
     Indication: TOOTHACHE
     Dosage: 36 DOSAGE FORM, TWO TIMES A DAY
     Route: 065

REACTIONS (7)
  - Overdose [Unknown]
  - Hepatic failure [Unknown]
  - Somnolence [Unknown]
  - Vomiting [Unknown]
  - Abdominal pain [Unknown]
  - Analgesic drug level increased [Unknown]
  - Intentional self-injury [Unknown]
